FAERS Safety Report 4467626-0 (Version None)
Quarter: 2004Q4

REPORT INFORMATION
  Report Type: 
  Country: None (occurrence: None)
  Receive Date: 20041004
  Receipt Date: 20041004
  Transmission Date: 20050328
  Serious: Yes (Other)
  Sender: FDA-Public Use
  Company Number: None

PATIENT
  Age: 76 Year
  Sex: Female
  Weight: 56.6996 kg

DRUGS (11)
  1. LEVAQUIN [Suspect]
     Indication: LOCALISED INFECTION
     Dosage: 250 MG PO QOD
     Route: 048
     Dates: start: 20040923, end: 20040927
  2. LEVAQUIN [Suspect]
     Indication: SKIN ULCER
     Dosage: 250 MG PO QOD
     Route: 048
     Dates: start: 20040923, end: 20040927
  3. FLUCONAZOLE [Suspect]
     Indication: FUNGAL INFECTION
     Dosage: 50 MG PO QOD
     Route: 048
     Dates: start: 20040923, end: 20040927
  4. ASPIRIN [Concomitant]
  5. CALCIUM CARBONATE [Concomitant]
  6. DIGOXIN [Concomitant]
  7. ENALAPRIL MALEATE [Concomitant]
  8. EPOETEN ALPHA [Concomitant]
  9. FLUCONAZOLE [Concomitant]
  10. FE DEXTRAN IV [Concomitant]
  11. KAEXOLATE [Concomitant]

REACTIONS (4)
  - FALL [None]
  - PRURITUS [None]
  - RASH ERYTHEMATOUS [None]
  - URTICARIA [None]
